FAERS Safety Report 19285013 (Version 2)
Quarter: 2021Q3

REPORT INFORMATION
  Report Type: Report from Study
  Country: US (occurrence: US)
  Receive Date: 20210521
  Receipt Date: 20210714
  Transmission Date: 20211014
  Serious: Yes (Other)
  Sender: FDA-Public Use
  Company Number: US-JNJFOC-20210409136

PATIENT
  Age: 64 Year
  Sex: Female

DRUGS (4)
  1. SPRAVATO [Suspect]
     Active Substance: ESKETAMINE
     Dosage: 84 MG, TOTAL 16 DOSES
     Dates: start: 20200327, end: 20210326
  2. SPRAVATO [Suspect]
     Active Substance: ESKETAMINE
     Dates: start: 20210331, end: 20210331
  3. SPRAVATO [Suspect]
     Active Substance: ESKETAMINE
     Indication: DEPRESSION
     Dosage: 56 MG, TOTAL 1 DOSE
     Dates: start: 20200325, end: 20200325
  4. CLONIDINE. [Concomitant]
     Active Substance: CLONIDINE
     Indication: BLOOD PRESSURE INCREASED
     Dates: start: 20210331, end: 20210331

REACTIONS (2)
  - Blood pressure increased [Recovered/Resolved]
  - Dissociation [Recovered/Resolved]

NARRATIVE: CASE EVENT DATE: 20210331
